FAERS Safety Report 4883909-4 (Version None)
Quarter: 2006Q1

REPORT INFORMATION
  Report Type: 
  Country: None (occurrence: None)
  Receive Date: 20060118
  Receipt Date: 20050826
  Transmission Date: 20060701
  Serious: Yes (Other)
  Sender: FDA-Public Use
  Company Number: JP-BOEHRINGER INGELHEIM PHARMACEUTICALS, INC.-2005-BP-15270YA

PATIENT
  Age: 66 Year
  Sex: Male

DRUGS (2)
  1. HARNAL [Suspect]
     Indication: BENIGN PROSTATIC HYPERPLASIA
     Route: 048
     Dates: start: 20050303
  2. CERNILTON [Suspect]
     Route: 048
     Dates: start: 20050303

REACTIONS (1)
  - RETINAL DETACHMENT [None]
